FAERS Safety Report 25340980 (Version 1)
Quarter: 2025Q2

REPORT INFORMATION
  Report Type: Spontaneous
  Country: FR (occurrence: FR)
  Receive Date: 20250521
  Receipt Date: 20250521
  Transmission Date: 20250716
  Serious: Yes (Hospitalization, Disabling, Other)
  Sender: AUROBINDO
  Company Number: FR-AFSSAPS-PC2025000360

PATIENT
  Age: 33 Year
  Sex: Female
  Weight: 43 kg

DRUGS (1)
  1. ZOLMITRIPTAN [Suspect]
     Active Substance: ZOLMITRIPTAN
     Indication: Migraine
     Route: 060
     Dates: start: 20200101, end: 20250101

REACTIONS (1)
  - Tongue neoplasm malignant stage unspecified [Not Recovered/Not Resolved]

NARRATIVE: CASE EVENT DATE: 20240601
